FAERS Safety Report 16679449 (Version 3)
Quarter: 2020Q1

REPORT INFORMATION
  Report Type: Spontaneous
  Country: ES (occurrence: ES)
  Receive Date: 20190807
  Receipt Date: 20200226
  Transmission Date: 20200409
  Serious: Yes (Hospitalization, Other)
  Sender: FDA-Public Use
  Company Number: ES-MYLANLABS-2019M1073306

PATIENT
  Age: 45 Year
  Sex: Male

DRUGS (2)
  1. TOPIRAMATE. [Suspect]
     Active Substance: TOPIRAMATE
     Dosage: 50 MILLIGRAM, QD(MAINTAINED FOR ANOTHER WEEK   )
  2. TOPIRAMATE. [Suspect]
     Active Substance: TOPIRAMATE
     Indication: ABSTAINS FROM ALCOHOL
     Dosage: 25 MILLIGRAM, QD(FOR 1 WEEK )

REACTIONS (3)
  - Pseudomyopia [Recovered/Resolved]
  - Angle closure glaucoma [Recovered/Resolved]
  - Choroidal effusion [Recovered/Resolved]
